FAERS Safety Report 22035043 (Version 2)
Quarter: 2023Q1

REPORT INFORMATION
  Report Type: Spontaneous
  Country: None (occurrence: GB)
  Receive Date: 20230224
  Receipt Date: 20230301
  Transmission Date: 20230417
  Serious: Yes (Death, Other)
  Sender: FDA-Public Use
  Company Number: GB-Breckenridge Pharmaceutical, Inc.-2138379

PATIENT
  Age: 48 Year
  Sex: Male

DRUGS (4)
  1. OMEPRAZOLE [Suspect]
     Active Substance: OMEPRAZOLE
     Indication: Dyspepsia
     Route: 048
     Dates: start: 20070824, end: 20200616
  2. LISINOPRIL [Concomitant]
     Active Substance: LISINOPRIL
  3. UNSPECIFIED INGREDIENT [Concomitant]
     Active Substance: UNSPECIFIED INGREDIENT
  4. UNSPECIFIED INGREDIENT [Concomitant]
     Active Substance: UNSPECIFIED INGREDIENT

REACTIONS (5)
  - Medication error [Fatal]
  - Death [Fatal]
  - Gastric cancer stage III [Fatal]
  - Vomiting [Fatal]
  - COVID-19 [Fatal]
